FAERS Safety Report 12376025 (Version 1)
Quarter: 2016Q2

REPORT INFORMATION
  Report Type: Spontaneous
  Country: US (occurrence: US)
  Receive Date: 20160517
  Receipt Date: 20160517
  Transmission Date: 20160815
  Serious: Yes (Other)
  Sender: FDA-Public Use
  Company Number: US-BAYER-2016-094514

PATIENT
  Sex: Female

DRUGS (1)
  1. MIRENA [Suspect]
     Active Substance: LEVONORGESTREL
     Indication: CONTRACEPTION
     Dosage: 20 MCG/24HR, CONT
     Route: 015
     Dates: start: 2010, end: 2013

REACTIONS (5)
  - Drug ineffective [None]
  - Genital haemorrhage [None]
  - Pregnancy with contraceptive device [None]
  - Pain [Not Recovered/Not Resolved]
  - Pelvic inflammatory disease [None]

NARRATIVE: CASE EVENT DATE: 2010
